FAERS Safety Report 7450768-5 (Version None)
Quarter: 2011Q2

REPORT INFORMATION
  Report Type: 
  Country: None (occurrence: None)
  Receive Date: 20110502
  Receipt Date: 20110421
  Transmission Date: 20111010
  Serious: Yes (Other)
  Sender: FDA-Public Use
  Company Number: US-AMGEN-USASP2011021190

PATIENT
  Age: 51 Year
  Sex: Female

DRUGS (2)
  1. ENBREL [Suspect]
     Indication: RHEUMATOID ARTHRITIS
     Dosage: 50 MG, QWK
     Dates: start: 20110201
  2. METHOTREXATE [Concomitant]

REACTIONS (9)
  - MEMORY IMPAIRMENT [None]
  - ANXIETY [None]
  - MALAISE [None]
  - SWELLING [None]
  - DEPRESSION [None]
  - MUSCULOSKELETAL STIFFNESS [None]
  - NAUSEA [None]
  - GAIT DISTURBANCE [None]
  - DIARRHOEA [None]
